FAERS Safety Report 8188216-2 (Version None)
Quarter: 2012Q1

REPORT INFORMATION
  Report Type: 
  Country: None (occurrence: None)
  Receive Date: 20120306
  Receipt Date: 20120227
  Transmission Date: 20120608
  Serious: Yes (Hospitalization)
  Sender: FDA-Public Use
  Company Number: FR-ASTRAZENECA-2012SE14242

PATIENT
  Age: 24910 Day
  Sex: Female

DRUGS (8)
  1. MABCAMPATH [Suspect]
     Route: 058
     Dates: start: 20110705, end: 20111223
  2. ACYCLOVIR [Suspect]
     Route: 048
  3. PENTACARINAT [Concomitant]
  4. ZYMAD [Suspect]
     Route: 048
  5. NEXIUM [Suspect]
     Route: 048
  6. CRESTOR [Suspect]
     Route: 048
  7. FLUOXETINE HCL [Suspect]
     Route: 048
  8. LEVOTHYROXINE SODIUM [Suspect]
     Route: 048

REACTIONS (2)
  - ALVEOLITIS [None]
  - INTERSTITIAL LUNG DISEASE [None]
